FAERS Safety Report 14153435 (Version 2)
Quarter: 2019Q1

REPORT INFORMATION
  Report Type: Spontaneous
  Country: US (occurrence: US)
  Receive Date: 20171102
  Receipt Date: 20190128
  Transmission Date: 20190417
  Serious: No
  Sender: FDA-Public Use
  Company Number: US-SA-2017SA155849

PATIENT
  Sex: Female
  Weight: 63.95 kg

DRUGS (2)
  1. PRALUENT [Suspect]
     Active Substance: ALIROCUMAB
     Indication: HYPERTRIGLYCERIDAEMIA
     Dosage: 150 MG, QOW
     Route: 058
     Dates: start: 20180508
  2. PRALUENT [Suspect]
     Active Substance: ALIROCUMAB
     Indication: HYPERCHOLESTEROLAEMIA
     Dosage: 75 MG,QOW
     Route: 058
     Dates: start: 20160503

REACTIONS (2)
  - Blood cholesterol increased [Unknown]
  - Injection site pain [Unknown]
